FAERS Safety Report 9322450 (Version 1)
Quarter: 2013Q2

REPORT INFORMATION
  Report Type: Report from Study
  Country: SE (occurrence: SE)
  Receive Date: 20130531
  Receipt Date: 20130531
  Transmission Date: 20140414
  Serious: Yes (Other)
  Sender: FDA-Public Use
  Company Number: SE-ABBOTT-13P-150-1094143-00

PATIENT
  Sex: Female

DRUGS (4)
  1. HUMIRA [Suspect]
     Indication: CROHN^S DISEASE
     Route: 058
     Dates: start: 20070625, end: 20070625
  2. HUMIRA [Suspect]
     Route: 058
     Dates: end: 20080124
  3. HUMIRA [Suspect]
     Route: 058
     Dates: start: 20090903, end: 201010
  4. HUMIRA [Suspect]
     Route: 058
     Dates: start: 201011

REACTIONS (3)
  - Pneumonia [Unknown]
  - Pyelonephritis [Unknown]
  - Rash [Unknown]
